FAERS Safety Report 6206810-2 (Version None)
Quarter: 2009Q2

REPORT INFORMATION
  Report Type: 
  Country: None (occurrence: None)
  Receive Date: 20090528
  Receipt Date: 20090520
  Transmission Date: 20091009
  Serious: Yes (Other)
  Sender: FDA-Public Use
  Company Number: HR-JNJFOC-20090505645

PATIENT
  Age: 50 Year
  Sex: Female

DRUGS (3)
  1. RISPOLEPT [Suspect]
     Route: 048
  2. RISPOLEPT [Suspect]
     Indication: SCHIZOPHRENIA
     Route: 048
  3. PALIPERIDONE [Concomitant]
     Route: 065

REACTIONS (4)
  - DISEASE PROGRESSION [None]
  - HYPERTENSION [None]
  - NOREPINEPHRINE INCREASED [None]
  - RENAL CYST [None]
